FAERS Safety Report 9901433 (Version 1)
Quarter: 2014Q1

REPORT INFORMATION
  Report Type: Spontaneous
  Country: FR (occurrence: FR)
  Receive Date: 20140217
  Receipt Date: 20140217
  Transmission Date: 20141002
  Serious: Yes (Hospitalization, Other)
  Sender: FDA-Public Use
  Company Number: FR-PFIZER INC-2014036527

PATIENT
  Age: 61 Year
  Sex: Female

DRUGS (1)
  1. SALAZOPYRINE [Suspect]
     Dosage: UNK
     Route: 048
     Dates: start: 200511, end: 200602

REACTIONS (7)
  - Asthenia [Recovered/Resolved]
  - Dysphagia [Recovered/Resolved]
  - Chills [Recovered/Resolved]
  - Agranulocytosis [Recovered/Resolved]
  - Anaemia [Recovered/Resolved]
  - Bone marrow failure [Recovered/Resolved]
  - Cholestatic liver injury [Unknown]
